FAERS Safety Report 4777139-4 (Version None)
Quarter: 2005Q3

REPORT INFORMATION
  Report Type: 
  Country: None (occurrence: None)
  Receive Date: 20050923
  Receipt Date: 20050916
  Transmission Date: 20060218
  Serious: Yes (Hospitalization, Other)
  Sender: FDA-Public Use
  Company Number: US-BRISTOL-MYERS SQUIBB COMPANY-13114087

PATIENT
  Age: 63 Year
  Sex: Male
  Weight: 138 kg

DRUGS (8)
  1. CETUXIMAB [Suspect]
     Indication: NON-SMALL CELL LUNG CANCER
     Route: 042
     Dates: start: 20050915, end: 20050915
  2. CARBOPLATIN [Suspect]
     Indication: NON-SMALL CELL LUNG CANCER
  3. PACLITAXEL [Suspect]
     Indication: NON-SMALL CELL LUNG CANCER
  4. SAW PALMETTO [Concomitant]
  5. METHOTREXATE [Concomitant]
  6. COUMADIN [Concomitant]
  7. ELAVIL [Concomitant]
  8. HYDROCHLOROTHIAZIDE [Concomitant]
     Dosage: ONE EVERY OTHER DAY

REACTIONS (7)
  - DIZZINESS [None]
  - FALL [None]
  - HAEMOGLOBIN DECREASED [None]
  - HYPOAESTHESIA [None]
  - HYPOTENSION [None]
  - INTERNATIONAL NORMALISED RATIO INCREASED [None]
  - PROTHROMBIN TIME PROLONGED [None]
